FAERS Safety Report 16380151 (Version 1)
Quarter: 2019Q2

REPORT INFORMATION
  Report Type: Spontaneous
  Country: FR (occurrence: FR)
  Receive Date: 20190601
  Receipt Date: 20190601
  Transmission Date: 20190711
  Serious: Yes (Other)
  Sender: FDA-Public Use
  Company Number: FR-AUROBINDO-AUR-APL-2019-030760

PATIENT

DRUGS (5)
  1. CODEINE [Suspect]
     Active Substance: CODEINE
     Indication: SUBSTANCE USE
     Dosage: 150 MILLIGRAM PER INTAKE
     Route: 065
  2. SKENAN [Suspect]
     Active Substance: MORPHINE SULFATE
     Indication: SUBSTANCE USE
     Dosage: FROM 60 TO 80 MG IN A SINGLE INTAKE, 2 TO 3 TIMES WEEKLY
     Route: 045
  3. SKENAN [Suspect]
     Active Substance: MORPHINE SULFATE
     Dosage: 200 MILLIGRAM
     Route: 045
  4. TRAMADOL. [Suspect]
     Active Substance: TRAMADOL
     Indication: SUBSTANCE USE
     Dosage: 300 MILLIGRAM PER INTAKE
     Route: 065
  5. CODEINE [Suspect]
     Active Substance: CODEINE
     Dosage: 60 MILLIGRAM PER INTAKE
     Route: 065

REACTIONS (5)
  - Intentional product use issue [Unknown]
  - Nausea [Unknown]
  - Feeling hot [Unknown]
  - Drug tolerance increased [Unknown]
  - Drug abuse [Unknown]
